FAERS Safety Report 17836536 (Version 1)
Quarter: 2020Q2

REPORT INFORMATION
  Report Type: Spontaneous
  Country: CN (occurrence: CN)
  Receive Date: 20200528
  Receipt Date: 20200528
  Transmission Date: 20200714
  Serious: Yes (Other)
  Sender: FDA-Public Use
  Company Number: CN-VALIDUS PHARMACEUTICALS LLC-CN-2020VAL000439

PATIENT

DRUGS (2)
  1. CALCITRIOL. [Suspect]
     Active Substance: CALCITRIOL
     Indication: SECONDARY HYPERTHYROIDISM
     Dosage: UNK
     Route: 065
  2. CANDESARTAN CILEXETIL. [Suspect]
     Active Substance: CANDESARTAN CILEXETIL
     Indication: SECONDARY HYPERTHYROIDISM
     Dosage: 8 MG, QD
     Route: 048

REACTIONS (8)
  - Pain [Unknown]
  - Intentional product use issue [Unknown]
  - Headache [Unknown]
  - Vomiting [Unknown]
  - Off label use [Unknown]
  - Nausea [Unknown]
  - Dysgeusia [Unknown]
  - Angioedema [Unknown]
